FAERS Safety Report 6236955-2 (Version None)
Quarter: 2009Q2

REPORT INFORMATION
  Report Type: 
  Country: None (occurrence: None)
  Receive Date: 20090619
  Receipt Date: 20090226
  Transmission Date: 20091009
  Serious: No
  Sender: FDA-Public Use
  Company Number: US-ASTRAZENECA-2009UW05428

PATIENT
  Age: 64 Year
  Sex: Female
  Weight: 129.3 kg

DRUGS (1)
  1. SYMBICORT [Suspect]
     Indication: ASTHMA
     Route: 055
     Dates: start: 20090225, end: 20090225

REACTIONS (3)
  - CHEST DISCOMFORT [None]
  - NAUSEA [None]
  - NERVOUSNESS [None]
